FAERS Safety Report 20645914 (Version 1)
Quarter: 2022Q1

REPORT INFORMATION
  Report Type: Spontaneous
  Country: CN (occurrence: CN)
  Receive Date: 20220329
  Receipt Date: 20220329
  Transmission Date: 20220423
  Serious: Yes (Other)
  Sender: FDA-Public Use
  Company Number: CN-SUN PHARMACEUTICAL INDUSTRIES LTD-2022R1-330711

PATIENT
  Age: 74 Year
  Sex: Male

DRUGS (5)
  1. CARBOPLATIN [Suspect]
     Active Substance: CARBOPLATIN
     Indication: Lung adenocarcinoma
     Dosage: 4 CYCLES
     Route: 065
     Dates: start: 20190920
  2. PEMETREXED [Suspect]
     Active Substance: PEMETREXED
     Indication: Lung adenocarcinoma
     Dosage: 4 CYCLES
     Route: 065
     Dates: start: 20190920
  3. PEMETREXED [Suspect]
     Active Substance: PEMETREXED
     Dosage: 11 CYCLES
     Route: 065
     Dates: start: 20191212, end: 20200423
  4. TISLELIZUMAB [Concomitant]
     Active Substance: TISLELIZUMAB
     Indication: Lung adenocarcinoma
     Dosage: UNK
     Route: 065
     Dates: start: 20190920
  5. TISLELIZUMAB [Concomitant]
     Active Substance: TISLELIZUMAB
     Dosage: 11 CYCLES
     Route: 065
     Dates: start: 20191212, end: 20200423

REACTIONS (1)
  - Therapy partial responder [Unknown]
